FAERS Safety Report 8268809-4 (Version None)
Quarter: 2012Q2

REPORT INFORMATION
  Report Type: 
  Country: None (occurrence: None)
  Receive Date: 20120409
  Receipt Date: 20120409
  Transmission Date: 20120825
  Serious: Yes (Hospitalization, Other)
  Sender: FDA-Public Use
  Company Number: None

PATIENT
  Age: 27 Year
  Sex: Male
  Weight: 99.79 kg

DRUGS (1)
  1. PROPECIA [Suspect]
     Indication: ALOPECIA
     Dosage: 1.0 MG
     Route: 048
     Dates: start: 20100915, end: 20101227

REACTIONS (9)
  - DYSPEPSIA [None]
  - HEPATIC PAIN [None]
  - FATIGUE [None]
  - NERVOUS SYSTEM DISORDER [None]
  - TESTICULAR ATROPHY [None]
  - ANXIETY [None]
  - DEPRESSION [None]
  - SEXUAL DYSFUNCTION [None]
  - INSOMNIA [None]
